FAERS Safety Report 22379756 (Version 2)
Quarter: 2023Q2

REPORT INFORMATION
  Report Type: Spontaneous
  Country: SI (occurrence: SI)
  Receive Date: 20230529
  Receipt Date: 20230617
  Transmission Date: 20230721
  Serious: Yes (Other)
  Sender: FDA-Public Use
  Company Number: SI-AMGEN-SVNSP2023090176

PATIENT
  Age: 74 Year
  Sex: Female

DRUGS (1)
  1. PROLIA [Suspect]
     Active Substance: DENOSUMAB
     Indication: Product used for unknown indication
     Dosage: UNK
     Route: 065
     Dates: start: 2014

REACTIONS (4)
  - Osteonecrosis of external auditory canal [Unknown]
  - Lumbar vertebral fracture [Unknown]
  - Hypoacusis [Unknown]
  - Ear pain [Unknown]

NARRATIVE: CASE EVENT DATE: 20230101
